FAERS Safety Report 8876522 (Version 1)
Quarter: 2012Q4

REPORT INFORMATION
  Report Type: 
  Country: US (occurrence: US)
  Receive Date: 20121023
  Receipt Date: 20121023
  Transmission Date: 20130627
  Serious: Yes (Hospitalization)
  Sender: FDA-Public Use
  Company Number: US-ASTELLAS-2012US003943

PATIENT
  Age: 66 None
  Sex: Female
  Weight: 63 kg

DRUGS (13)
  1. PROGRAF [Suspect]
     Indication: RENAL TRANSPLANT
     Dosage: 1 mg in AM and 2 mg in PM
     Route: 048
     Dates: start: 20051001
  2. PREDNISONE [Concomitant]
     Indication: RENAL TRANSPLANT
     Dosage: 5 mg, UID/QD
     Route: 048
     Dates: start: 20051001
  3. CELLCEPT [Concomitant]
     Indication: RENAL TRANSPLANT
     Dosage: 500 mg, bid
     Route: 048
     Dates: start: 20051001
  4. FOSAMAX [Concomitant]
     Indication: OSTEOPENIA
     Dosage: 70 mg, Weekly
     Route: 048
  5. LAMICTAL [Concomitant]
     Indication: BIPOLAR DISORDER
     Dosage: 200 mg, UID/QD
     Route: 048
  6. REMERON [Concomitant]
     Indication: BIPOLAR DISORDER
     Dosage: 15 mg, UID/QD
     Route: 048
  7. ZYPREXA [Concomitant]
     Indication: BIPOLAR DISORDER
     Dosage: 10 mg, UID/QD
     Route: 048
  8. NEXIUM [Concomitant]
     Indication: GASTROOESOPHAGEAL REFLUX DISEASE
     Dosage: 40 mg, UID/QD
     Route: 048
  9. NEPHRO-VITE [Concomitant]
     Indication: RENAL DISORDER
     Dosage: UNK
     Route: 048
  10. CALCIUM [Concomitant]
     Indication: BLOOD CALCIUM DECREASED
     Dosage: 500 mg, UID/QD
     Route: 048
  11. VITA-D [Concomitant]
     Indication: VITAMIN D DECREASED
     Dosage: 200 mg, UID/QD
     Route: 048
  12. QUESTRAN LIGHT [Concomitant]
     Indication: BLOOD CHOLESTEROL INCREASED
     Dosage: 4 g, UID/QD
     Route: 048
  13. AZITHROMYCIN [Concomitant]
     Indication: EYE DISORDER
     Dosage: UNK
     Route: 061
     Dates: start: 20120312

REACTIONS (3)
  - Fall [Recovered/Resolved]
  - Face injury [Recovered/Resolved]
  - Amnesia [Recovered/Resolved]
